FAERS Safety Report 15123347 (Version 2)
Quarter: 2025Q4

REPORT INFORMATION
  Report Type: Spontaneous
  Country: EU (occurrence: EU)
  Receive Date: 20180709
  Receipt Date: 20251210
  Transmission Date: 20260118
  Serious: Yes (Death, Hospitalization)
  Sender: SANOFI AVENTIS
  Company Number: None

PATIENT
  Age: 63 Year
  Sex: Male

DRUGS (13)
  1. LEFLUNOMIDE [Suspect]
     Active Substance: LEFLUNOMIDE
     Indication: Product used for unknown indication
     Dosage: 20 MG
     Route: 065
  2. LEFLUNOMIDE [Suspect]
     Active Substance: LEFLUNOMIDE
     Dosage: 10 MG
  3. MABTHERA [Suspect]
     Active Substance: RITUXIMAB
     Indication: Rheumatoid arthritis
     Dosage: ON 01/DEC/2015, RECEIVED LAST DOSE PRIOR TO EVENT
     Route: 042
     Dates: start: 201308
  4. MABTHERA [Suspect]
     Active Substance: RITUXIMAB
     Dosage: 1000 MG
     Route: 042
     Dates: start: 201403
  5. MABTHERA [Suspect]
     Active Substance: RITUXIMAB
     Dosage: 1000 MG
     Route: 042
     Dates: start: 201409
  6. MABTHERA [Suspect]
     Active Substance: RITUXIMAB
     Dosage: 1000 MG
     Route: 042
     Dates: start: 201504
  7. MABTHERA [Suspect]
     Active Substance: RITUXIMAB
     Dosage: 1000 MG
     Route: 042
     Dates: start: 201512, end: 20151201
  8. PANTOZOL [Concomitant]
     Active Substance: PANTOPRAZOLE SODIUM
  9. CHOLECALCIFEROL [Concomitant]
     Active Substance: CHOLECALCIFEROL
  10. NEBIVOLOL [Concomitant]
     Active Substance: NEBIVOLOL
  11. PREDNISOLONE [Concomitant]
     Active Substance: PREDNISOLONE
  12. ASPIRIN [Concomitant]
     Active Substance: ASPIRIN
  13. LOSARTAN [Concomitant]
     Active Substance: LOSARTAN

REACTIONS (7)
  - Pulmonary sepsis [Fatal]
  - Colon cancer [Recovered/Resolved]
  - Postoperative wound infection [Unknown]
  - Colon cancer metastatic [Fatal]
  - Pulmonary mass [Unknown]
  - Pneumonia [Fatal]
  - Pneumonia [Unknown]

NARRATIVE: CASE EVENT DATE: 20160101
